FAERS Safety Report 7852995-1 (Version None)
Quarter: 2011Q4

REPORT INFORMATION
  Report Type: 
  Country: None (occurrence: None)
  Receive Date: 20111026
  Receipt Date: 20111018
  Transmission Date: 20120403
  Serious: No
  Sender: FDA-Public Use
  Company Number: US-BAYER-2011-102450

PATIENT
  Age: 80 Year
  Sex: Female
  Weight: 48 kg

DRUGS (2)
  1. ALEVE (CAPLET) [Suspect]
     Indication: BACK PAIN
     Dosage: 1 DF, UNK
     Route: 048
     Dates: start: 20111015, end: 20111016
  2. ACETYLSALICYLIC ACID SRT [Concomitant]

REACTIONS (4)
  - PRURITUS [None]
  - DYSARTHRIA [None]
  - DIZZINESS [None]
  - DISORIENTATION [None]
